FAERS Safety Report 6424755-X (Version None)
Quarter: 2009Q4

REPORT INFORMATION
  Report Type: 
  Country: None (occurrence: None)
  Receive Date: 20091103
  Receipt Date: 20091027
  Transmission Date: 20100525
  Serious: Yes (Hospitalization)
  Sender: FDA-Public Use
  Company Number: US-ALEXION-A200900885

PATIENT

DRUGS (1)
  1. SOLIRIS [Suspect]
     Route: 042

REACTIONS (1)
  - CRANIOTOMY [None]
